FAERS Safety Report 17257722 (Version 2)
Quarter: 2020Q1

REPORT INFORMATION
  Report Type: Spontaneous
  Country: PL (occurrence: PL)
  Receive Date: 20200110
  Receipt Date: 20200330
  Transmission Date: 20200409
  Serious: Yes (Hospitalization, Other)
  Sender: FDA-Public Use
  Company Number: PL-MYLANLABS-2020M1002381

PATIENT
  Age: 37 Year
  Sex: Female

DRUGS (3)
  1. IBUPROFEN. [Suspect]
     Active Substance: IBUPROFEN
     Dosage: UNK, (DOSE NOT REPORTED)
     Route: 048
  2. ROSUVASTATIN. [Suspect]
     Active Substance: ROSUVASTATIN
     Indication: PRODUCT USED FOR UNKNOWN INDICATION
     Dosage: UNK
     Route: 065
  3. IBUPROFEN. [Suspect]
     Active Substance: IBUPROFEN
     Indication: PRODUCT USED FOR UNKNOWN INDICATION
     Dosage: UNK
     Route: 065

REACTIONS (8)
  - Jaundice [Unknown]
  - Oligohydramnios [Unknown]
  - Fatigue [Unknown]
  - Body mass index decreased [Unknown]
  - Maternal exposure during pregnancy [Recovered/Resolved]
  - Transaminases increased [Unknown]
  - Laboratory test abnormal [Unknown]
  - Anaemia [Unknown]
